FAERS Safety Report 9377497 (Version 2)
Quarter: 2013Q3

REPORT INFORMATION
  Report Type: Spontaneous
  Country: FR (occurrence: FR)
  Receive Date: 20130701
  Receipt Date: 20130726
  Transmission Date: 20140515
  Serious: Yes (Other)
  Sender: FDA-Public Use
  Company Number: FR-ASTRAZENECA-2013SE48926

PATIENT
  Age: 80 Year
  Sex: Male

DRUGS (8)
  1. PULMICORT [Suspect]
     Indication: RESPIRATORY FAILURE
     Route: 055
  2. PULMICORT [Suspect]
     Indication: RESPIRATORY FAILURE
     Dosage: BUDESONIDE EG (NON-AZ PRODUCT)
     Route: 055
  3. VENTOLINE [Concomitant]
     Indication: RESPIRATORY FAILURE
     Route: 055
  4. TRENTADIL [Concomitant]
     Route: 048
  5. SINGULAIR [Concomitant]
     Route: 048
  6. INEXIUM [Concomitant]
     Route: 048
  7. SMECTA [Concomitant]
     Dosage: EXCEPTIONALLY
  8. STRESAM [Concomitant]
     Dosage: EXCEPTIONALLY

REACTIONS (2)
  - Condition aggravated [Recovered/Resolved]
  - Drug ineffective [Recovered/Resolved]
